FAERS Safety Report 7546526-3 (Version None)
Quarter: 2011Q2

REPORT INFORMATION
  Report Type: 
  Country: None (occurrence: None)
  Receive Date: 20110607
  Receipt Date: 20110523
  Transmission Date: 20111010
  Serious: Yes (Hospitalization)
  Sender: FDA-Public Use
  Company Number: 2011MA006235

PATIENT
  Age: 60 Year
  Sex: Male

DRUGS (1)
  1. SULFATRIM PEDIATRIC [Suspect]
     Indication: CATARACT OPERATION

REACTIONS (6)
  - BLOOD CREATININE INCREASED [None]
  - PYREXIA [None]
  - TOXIC EPIDERMAL NECROLYSIS [None]
  - BLOOD ALBUMIN DECREASED [None]
  - DISSEMINATED INTRAVASCULAR COAGULATION [None]
  - PROTEIN TOTAL DECREASED [None]
